FAERS Safety Report 12465497 (Version 2)
Quarter: 2016Q3

REPORT INFORMATION
  Report Type: Report from Study
  Country: US (occurrence: US)
  Receive Date: 20160614
  Receipt Date: 20160829
  Transmission Date: 20161109
  Serious: Yes (Hospitalization)
  Sender: FDA-Public Use
  Company Number: US-EISAI MEDICAL RESEARCH-EC-2016-015560

PATIENT
  Age: 69 Year
  Sex: Female

DRUGS (15)
  1. CLONAZEPAM. [Concomitant]
     Active Substance: CLONAZEPAM
  2. VITAMIN D3 [Concomitant]
     Active Substance: CHOLECALCIFEROL
  3. OXYCODONE [Concomitant]
     Active Substance: OXYCODONE
  4. ZOFRAN [Concomitant]
     Active Substance: ONDANSETRON HYDROCHLORIDE
  5. LIDOCAINE PATCH [Concomitant]
     Active Substance: LIDOCAINE
  6. LENVIMA [Suspect]
     Active Substance: LENVATINIB
     Route: 048
     Dates: start: 2016, end: 201606
  7. LENVIMA [Suspect]
     Active Substance: LENVATINIB
     Route: 048
     Dates: start: 20160803
  8. DIAZEPAM. [Concomitant]
     Active Substance: DIAZEPAM
  9. DILANTIN [Concomitant]
     Active Substance: PHENYTOIN
  10. SYNTHROID [Concomitant]
     Active Substance: LEVOTHYROXINE SODIUM
  11. DOXEPIN [Concomitant]
     Active Substance: DOXEPIN
  12. LASIX [Concomitant]
     Active Substance: FUROSEMIDE
  13. FLUOXETINE [Concomitant]
     Active Substance: FLUOXETINE HYDROCHLORIDE
  14. LENVIMA [Suspect]
     Active Substance: LENVATINIB
     Indication: THYROID CANCER
     Route: 048
     Dates: start: 20160311, end: 2016
  15. OXYCONTIN [Concomitant]
     Active Substance: OXYCODONE HYDROCHLORIDE

REACTIONS (5)
  - Pain [Unknown]
  - Dyspnoea [Unknown]
  - Gastric ulcer perforation [Recovering/Resolving]
  - Blood pressure increased [Recovered/Resolved]
  - Tumour excision [Unknown]

NARRATIVE: CASE EVENT DATE: 201603
